FAERS Safety Report 14484362 (Version 1)
Quarter: 2018Q1

REPORT INFORMATION
  Report Type: Spontaneous
  Country: US (occurrence: US)
  Receive Date: 20180202
  Receipt Date: 20180202
  Transmission Date: 20180509
  Serious: Yes (Other)
  Sender: FDA-Public Use
  Company Number: None

PATIENT
  Age: 63 Year
  Sex: Female
  Weight: 56.7 kg

DRUGS (11)
  1. PREDNISOLONE ACETATE OPHTHALMIC SUSPENSION, 1% [Suspect]
     Active Substance: PREDNISOLONE ACETATE
     Indication: CORNEAL TRANSPLANT
     Dosage: QUANTITY:10 DROP(S);?
     Route: 047
  2. PREDNISOLONE. [Concomitant]
     Active Substance: PREDNISOLONE
  3. PREDNISOLONE ACETATE OPHTHALMIC SUSPENSION, 1% [Suspect]
     Active Substance: PREDNISOLONE ACETATE
     Indication: KERATOPLASTY
     Dosage: QUANTITY:10 DROP(S);?
     Route: 047
  4. LEVOTHYROXINE. [Concomitant]
     Active Substance: LEVOTHYROXINE
  5. CRANBERRY. [Concomitant]
     Active Substance: CRANBERRY
  6. CALCIUM [Concomitant]
     Active Substance: CALCIUM
  7. PRESERVISION [Concomitant]
     Active Substance: MINERALS\VITAMINS
  8. FLUOXETINE [Concomitant]
     Active Substance: FLUOXETINE HYDROCHLORIDE
  9. CITRUCEL [Concomitant]
     Active Substance: METHYLCELLULOSE (4000 MPA.S)
  10. PHILLIPS COLON HEALTH [Concomitant]
  11. COLACE [Suspect]
     Active Substance: DOCUSATE SODIUM

REACTIONS (2)
  - Product substitution issue [None]
  - Eye irritation [None]

NARRATIVE: CASE EVENT DATE: 20180102
